FAERS Safety Report 16679118 (Version 2)
Quarter: 2019Q3

REPORT INFORMATION
  Report Type: Spontaneous
  Country: US (occurrence: US)
  Receive Date: 20190807
  Receipt Date: 20190901
  Transmission Date: 20191004
  Serious: Yes (Hospitalization)
  Sender: FDA-Public Use
  Company Number: US-BIOGEN-2019BI00771934

PATIENT
  Sex: Female

DRUGS (1)
  1. TECFIDERA [Suspect]
     Active Substance: DIMETHYL FUMARATE
     Indication: MULTIPLE SCLEROSIS
     Dosage: MAINTENANCE DOSE
     Route: 048
     Dates: start: 20171002

REACTIONS (6)
  - Product storage error [Unknown]
  - Flushing [Unknown]
  - Feeling hot [Unknown]
  - Vomiting [Unknown]
  - Pruritus [Unknown]
  - Diarrhoea [Unknown]
